FAERS Safety Report 17578397 (Version 1)
Quarter: 2020Q1

REPORT INFORMATION
  Report Type: Spontaneous
  Country: DE (occurrence: DE)
  Receive Date: 20200324
  Receipt Date: 20200324
  Transmission Date: 20200409
  Serious: Yes (Hospitalization, Other)
  Sender: FDA-Public Use
  Company Number: DE-SA-2020SA068481

PATIENT
  Age: 75 Year
  Sex: Male

DRUGS (8)
  1. CANDESARTAN. [Concomitant]
     Active Substance: CANDESARTAN
     Dosage: 16 MG, QD
     Route: 065
  2. TAFLUPROST [Concomitant]
     Active Substance: TAFLUPROST
     Dosage: 15 UG/ML, QD
     Route: 065
  3. TIMOLOL. [Concomitant]
     Active Substance: TIMOLOL
     Dosage: UNK UNK, QD
     Route: 065
  4. RIVAROXABAN [Concomitant]
     Active Substance: RIVAROXABAN
     Dosage: 20 MG, QD
     Route: 065
  5. BISOPROLOL [Concomitant]
     Active Substance: BISOPROLOL
     Dosage: 5 MG, QD
     Route: 065
  6. ALFUZOSIN [Concomitant]
     Active Substance: ALFUZOSIN
     Dosage: 10 MG, QD
     Route: 065
  7. DRONEDARONE [Suspect]
     Active Substance: DRONEDARONE
     Indication: ATRIAL FIBRILLATION
     Dosage: 2 ? 400 MG/D
     Route: 065
  8. AMLODIPINE [Concomitant]
     Active Substance: AMLODIPINE BESYLATE
     Dosage: 5 MG, QD
     Route: 065

REACTIONS (8)
  - Metabolic disorder [Recovered/Resolved]
  - Ventricular hypertrophy [Recovered/Resolved]
  - Diastolic dysfunction [Recovered/Resolved]
  - Infection [Recovered/Resolved]
  - Bradycardia [Recovered/Resolved]
  - Cardiovascular insufficiency [Recovered/Resolved]
  - Oversensing [Recovered/Resolved]
  - Electrolyte imbalance [Recovered/Resolved]
